FAERS Safety Report 5586065-2 (Version None)
Quarter: 2008Q1

REPORT INFORMATION
  Report Type: 
  Country: None (occurrence: None)
  Receive Date: 20080107
  Receipt Date: 20071226
  Transmission Date: 20080703
  Serious: Yes (Hospitalization)
  Sender: FDA-Public Use
  Company Number: 2007BI023452

PATIENT
  Age: 47 Year
  Sex: Female

DRUGS (13)
  1. TYSABRI [Suspect]
     Indication: MULTIPLE SCLEROSIS
     Dosage: 300 MG;QM;IV
     Route: 042
     Dates: start: 20070511
  2. ESTRACE [Concomitant]
  3. LIPITOR [Concomitant]
  4. TOPAMAX [Concomitant]
  5. LUMIGAN [Concomitant]
  6. AMBIEN CR [Concomitant]
  7. ASPIRIN [Concomitant]
  8. LORTAB [Concomitant]
  9. PROTONIX [Concomitant]
  10. RELAFEN [Concomitant]
  11. CYMBALTA [Concomitant]
  12. BACLOFEN [Concomitant]
  13. PHENERGAN HCL [Concomitant]

REACTIONS (1)
  - MIGRAINE [None]
